FAERS Safety Report 9730393 (Version 1)
Quarter: 2013Q4

REPORT INFORMATION
  Report Type: Spontaneous
  Country: FR (occurrence: FR)
  Receive Date: 20131202
  Receipt Date: 20131202
  Transmission Date: 20140711
  Serious: Yes (Life-Threatening, Hospitalization, Other)
  Sender: FDA-Public Use
  Company Number: FR-ELI_LILLY_AND_COMPANY-FR201311006302

PATIENT
  Age: 84 Year
  Sex: Male

DRUGS (8)
  1. CYMBALTA [Suspect]
     Indication: PRODUCT USED FOR UNKNOWN INDICATION
     Dosage: UNK
     Route: 048
     Dates: end: 20130823
  2. GLIVEC [Suspect]
     Indication: CHRONIC MYELOID LEUKAEMIA
     Dosage: 400 MG, QD
     Route: 048
     Dates: start: 20110216, end: 20130823
  3. CELIPROLOL [Suspect]
     Indication: PRODUCT USED FOR UNKNOWN INDICATION
     Dosage: 200 MG, QD
     Route: 048
     Dates: end: 20130823
  4. BILASTINE [Suspect]
     Indication: PRODUCT USED FOR UNKNOWN INDICATION
     Dosage: 20 MG, QD
     Route: 048
     Dates: end: 20130823
  5. FENOFIBRATE [Suspect]
     Indication: PRODUCT USED FOR UNKNOWN INDICATION
     Dosage: 300 MG, QD
     Route: 048
     Dates: end: 20130823
  6. GABAPENTINE [Suspect]
     Indication: PRODUCT USED FOR UNKNOWN INDICATION
     Dosage: 100 MG, QD
     Route: 048
     Dates: end: 20130823
  7. ZOPICLONE [Suspect]
     Indication: PRODUCT USED FOR UNKNOWN INDICATION
     Dosage: 7.5 MG, QD
     Route: 048
     Dates: end: 20130823
  8. MACROGOL [Concomitant]

REACTIONS (10)
  - Atrial fibrillation [Not Recovered/Not Resolved]
  - Mesenteric artery embolism [Unknown]
  - Ascites [Unknown]
  - Splenic embolism [Unknown]
  - Peripheral embolism [Unknown]
  - Renal embolism [Unknown]
  - Peritonitis [Unknown]
  - Renal failure acute [Unknown]
  - Electrocardiogram QT prolonged [Unknown]
  - Short-bowel syndrome [Unknown]
